FAERS Safety Report 8283427-X (Version None)
Quarter: 2012Q2

REPORT INFORMATION
  Report Type: 
  Country: None (occurrence: None)
  Receive Date: 20120413
  Receipt Date: 20120404
  Transmission Date: 20120825
  Serious: Yes (Hospitalization, Other)
  Sender: FDA-Public Use
  Company Number: US-ELI_LILLY_AND_COMPANY-US201204001848

PATIENT
  Sex: Male

DRUGS (2)
  1. HUMALOG [Suspect]
     Dosage: UNK, UNKNOWN
     Route: 058
  2. HUMALOG [Suspect]
     Indication: DIABETES MELLITUS
     Dosage: UNK, UNKNOWN
     Route: 058

REACTIONS (9)
  - RENAL TRANSPLANT [None]
  - CORONARY ARTERY BYPASS [None]
  - BLOOD GLUCOSE INCREASED [None]
  - GASTRIC BYPASS [None]
  - VISUAL IMPAIRMENT [None]
  - HERPES ZOSTER [None]
  - GASTRIC OPERATION [None]
  - DRUG INEFFECTIVE [None]
  - MALAISE [None]
